FAERS Safety Report 8462990 (Version 2)
Quarter: 2015Q3

REPORT INFORMATION
  Report Type: Spontaneous
  Country: US (occurrence: US)
  Receive Date: 20120316
  Receipt Date: 20150827
  Transmission Date: 20151125
  Serious: Yes (Death, Hospitalization, Other)
  Sender: FDA-Public Use
  Company Number: US-SANOFI-AVENTIS-2012SA017194

PATIENT
  Age: 70 Year
  Sex: Male

DRUGS (11)
  1. PEPCID [Concomitant]
     Active Substance: FAMOTIDINE
  2. PLAVIX [Suspect]
     Active Substance: CLOPIDOGREL BISULFATE
     Indication: STENT PLACEMENT
     Route: 048
     Dates: start: 20061001, end: 20131113
  3. COREG [Concomitant]
     Active Substance: CARVEDILOL
     Route: 048
  4. VICODIN [Concomitant]
     Active Substance: ACETAMINOPHEN\HYDROCODONE BITARTRATE
  5. CELLCEPT [Concomitant]
     Active Substance: MYCOPHENOLATE MOFETIL\MYCOPHENOLATE MOFETIL HYDROCHLORIDE
     Route: 048
  6. ALTACE [Concomitant]
     Active Substance: RAMIPRIL
     Route: 048
  7. ASPIRIN. [Suspect]
     Active Substance: ASPIRIN
     Route: 065
     Dates: start: 2005, end: 201003
  8. NITROGLYCERINE [Concomitant]
     Active Substance: NITROGLYCERIN
  9. PROTONIX [Concomitant]
     Active Substance: PANTOPRAZOLE SODIUM
     Route: 048
  10. ASA [Concomitant]
     Active Substance: ASPIRIN
     Route: 048
  11. CRESTOR [Concomitant]
     Active Substance: ROSUVASTATIN CALCIUM
     Route: 048

REACTIONS (3)
  - Death [Fatal]
  - Haemorrhage [Unknown]
  - Gastrointestinal haemorrhage [Not Recovered/Not Resolved]

NARRATIVE: CASE EVENT DATE: 200912
